FAERS Safety Report 4690412-3 (Version None)
Quarter: 2005Q2

REPORT INFORMATION
  Report Type: 
  Country: None (occurrence: None)
  Receive Date: 20050615
  Receipt Date: 20050525
  Transmission Date: 20051028
  Serious: Yes (Death, Life-Threatening, Other)
  Sender: FDA-Public Use
  Company Number: PHBS2005JP07427

PATIENT
  Age: 32 Year
  Sex: Female

DRUGS (15)
  1. SANDIMMUNE [Suspect]
     Indication: BONE MARROW TRANSPLANT
     Dosage: 150 MG/D
     Route: 042
     Dates: start: 20041015, end: 20041027
  2. RADIOTHERAPY [Suspect]
  3. CHEMOTHERAPEUTICS,OTHER [Suspect]
  4. CYTARABINE [Suspect]
  5. CYCLOPHOSPHAMIDE [Suspect]
  6. PREDNISOLONE [Concomitant]
  7. ACYCLOVIR [Concomitant]
     Route: 042
  8. PRODIF [Concomitant]
     Route: 042
  9. ALPROSTADIL [Concomitant]
     Route: 042
  10. ANTITHROMBIN III [Concomitant]
     Route: 042
  11. VANCOMYCIN [Suspect]
     Route: 042
  12. MEROPEN [Suspect]
     Route: 042
  13. AMIKACIN SULFATE [Suspect]
     Route: 042
  14. PAZUCROSS [Suspect]
     Route: 042
  15. GRAN [Suspect]
     Route: 042

REACTIONS (21)
  - ACUTE RESPIRATORY DISTRESS SYNDROME [None]
  - BLOOD BILIRUBIN INCREASED [None]
  - BLOOD FIBRINOGEN DECREASED [None]
  - BLOOD LACTATE DEHYDROGENASE INCREASED [None]
  - BLOOD THROMBIN INCREASED [None]
  - CHEST X-RAY ABNORMAL [None]
  - DISSEMINATED INTRAVASCULAR COAGULATION [None]
  - DYSPNOEA [None]
  - FIBRIN D DIMER INCREASED [None]
  - FLUID OVERLOAD [None]
  - HAEMODIALYSIS [None]
  - HAEMOLYTIC ANAEMIA [None]
  - HEPATIC FAILURE [None]
  - RED BLOOD CELL SCHISTOCYTES PRESENT [None]
  - RENAL FAILURE [None]
  - RESPIRATORY FAILURE [None]
  - THROMBOCYTOPENIA [None]
  - THROMBOTIC MICROANGIOPATHY [None]
  - URINE OUTPUT DECREASED [None]
  - VENOOCCLUSIVE DISEASE [None]
  - WEIGHT INCREASED [None]
